FAERS Safety Report 8850912 (Version 1)
Quarter: 2012Q4

REPORT INFORMATION
  Report Type: 
  Country: US (occurrence: US)
  Receive Date: 20121019
  Receipt Date: 20121019
  Transmission Date: 20130627
  Serious: No
  Sender: FDA-Public Use
  Company Number: US-PFIZER INC-2012258687

PATIENT
  Age: 35 Year
  Sex: Female
  Weight: 59 kg

DRUGS (3)
  1. ADVIL COLD AND SINUS [Suspect]
     Indication: HEADACHE
     Dosage: 200 mg, 2x/day
     Dates: start: 20121012, end: 20121016
  2. ADVIL COLD AND SINUS [Suspect]
     Indication: SINUS CONGESTION
  3. AMBIEN [Concomitant]
     Indication: SLEEP DISORDER
     Dosage: 5 mg, daily

REACTIONS (1)
  - Drug ineffective [Unknown]
